FAERS Safety Report 26159921 (Version 1)
Quarter: 2025Q4

REPORT INFORMATION
  Report Type: Spontaneous
  Country: GB (occurrence: GB)
  Receive Date: 20251216
  Receipt Date: 20251216
  Transmission Date: 20260118
  Serious: Yes (Other)
  Sender: MERCK KGAA
  Company Number: None

PATIENT
  Age: 80 Year
  Sex: Male
  Weight: 77 kg

DRUGS (16)
  1. METFORMIN [Suspect]
     Active Substance: METFORMIN HYDROCHLORIDE
     Indication: Product used for unknown indication
  2. AMOXICILLIN [Concomitant]
     Active Substance: AMOXICILLIN
     Indication: Ill-defined disorder
     Dosage: TAKE ONE 3 TIMES/DAY
     Dates: start: 20251127, end: 20251204
  3. BECLOMETHASONE\FORMOTEROL [Concomitant]
     Active Substance: BECLOMETHASONE\FORMOTEROL
     Indication: Ill-defined disorder
     Dosage: MAINTENANCE, ONE PUFF TWICE A DAY. FOR IMMEDIAT...
     Dates: start: 20250314
  4. DEVICE\XYLITOL [Concomitant]
     Active Substance: DEVICE\XYLITOL
     Indication: Ill-defined disorder
     Dosage: USE AS DIRECTED
  5. CETRABEN [LIGHT LIQUID PARAFFIN;WHITE SOFT PARAFFIN] [Concomitant]
     Indication: Ill-defined disorder
     Dosage: USE AS DIRECTED
  6. DERMOL [CLOBETASOL PROPIONATE] [Concomitant]
     Indication: Ill-defined disorder
     Dosage: USE AS SOAP SUBSTITUTE
  7. FENOFIBRATE [Concomitant]
     Active Substance: FENOFIBRATE
     Indication: Ill-defined disorder
     Dosage: ONE TO BE TAKEN DAILY
     Dates: start: 20250318
  8. GLICLAZIDE [Concomitant]
     Active Substance: GLICLAZIDE
     Indication: Ill-defined disorder
     Dosage: TAKE 1 TABLET WITH BREAKFAST AND 1 TABLET WITH ...
  9. LANSOPRAZOLE [Concomitant]
     Active Substance: LANSOPRAZOLE
     Indication: Ill-defined disorder
     Dosage: TWO CAPSULES DAILY TO PROTECT YOUR STOMACH
     Dates: start: 20250318
  10. ACETAMINOPHEN [Concomitant]
     Active Substance: ACETAMINOPHEN
     Indication: Ill-defined disorder
     Dosage: 4X5ML SPOON 4 TIMES/DAY FOR PAIN.
     Dates: start: 20250318
  11. RISEDRONATE SODIUM [Concomitant]
     Active Substance: RISEDRONATE SODIUM
     Indication: Ill-defined disorder
     Dosage: TAKE ONE A WEEK, SWALLOW WITH PLENTY OF WATER W...
     Dates: start: 20250318
  12. GAVISCON ADVANCED [Concomitant]
     Indication: Ill-defined disorder
     Dosage: 10ML 4 TIMES/DAY
     Dates: start: 20250416
  13. EPIMAX [ISOPROPYL MYRISTATE;PARAFFIN, LIQUID] [Concomitant]
     Indication: Ill-defined disorder
     Dosage: USE AS DIRECTED
  14. LATANOPROST [Concomitant]
     Active Substance: LATANOPROST
     Indication: Ill-defined disorder
     Dosage: ONE DROP ONCE DAILY AT NIGHT TO BOTH EYES
     Dates: start: 20250602
  15. GOSERELIN [Concomitant]
     Active Substance: GOSERELIN
     Indication: Ill-defined disorder
     Dosage: ONE INJECTION MONTHLY, INCREASE TO THREE MONTHL...
     Dates: start: 20250602
  16. SERTRALINE [Concomitant]
     Active Substance: SERTRALINE HYDROCHLORIDE
     Indication: Ill-defined disorder
     Dosage: TAKE TWO EACH DAY (TOTAL DOSE 200MG)
     Dates: start: 20250718

REACTIONS (1)
  - Gastrointestinal disorder [Unknown]

NARRATIVE: CASE EVENT DATE: 20211014
